FAERS Safety Report 10385398 (Version 1)
Quarter: 2014Q1

REPORT INFORMATION
  Report Type: Spontaneous
  Country: US (occurrence: None)
  Receive Date: 20140306
  Receipt Date: 20140306
  Transmission Date: 20141002
  Serious: Yes (Other)
  Sender: FDA-Public Use
  Company Number: 163-21880-13053880

PATIENT
  Age: 50 Year
  Sex: Male
  Weight: 106.6 kg

DRUGS (9)
  1. REVLIMID (LENALIDOMIDE) (25 MILLIGRAM, CAPSULES) [Suspect]
     Indication: PLASMA CELL MYELOMA
     Route: 048
     Dates: start: 201108
  2. DECADRON (DEXAMETHASONE) [Concomitant]
  3. LIPITOR (ATORVASTATIN) [Concomitant]
  4. ZOMETA (ZOLEDRONIC ACID) [Concomitant]
  5. METFORMIN [Concomitant]
  6. BENAZEPRIL HCL (BENAZEPRIL HYDROCHLORIDE) [Concomitant]
  7. ASPIRIN (ACETYLSALICYLIC ACID) [Concomitant]
  8. ZOVIRAX (ACICLOVIR) [Concomitant]
  9. VELCADE (BORTEZOMIB) [Concomitant]

REACTIONS (3)
  - Deep vein thrombosis [None]
  - Pulmonary embolism [None]
  - Productive cough [None]
